FAERS Safety Report 9154863 (Version 3)
Quarter: 2013Q1

REPORT INFORMATION
  Report Type: Spontaneous
  Country: IT (occurrence: None)
  Receive Date: 20130208
  Receipt Date: 20130215
  Transmission Date: 20140127
  Serious: Yes (Hospitalization)
  Sender: FDA-Public Use
  Company Number: AUR-APL-2013-01244

PATIENT
  Age: 46 Year
  Sex: Male

DRUGS (1)
  1. METFORMIN (METFORMIN) [Suspect]
     Indication: HYPERGLYCAEMIA
     Dosage: 1 TABLET+1 TABLET + 1/2 TABLET (2125 MG/TOTAL), ORAL
     Route: 048
     Dates: start: 20120116, end: 20130120

REACTIONS (5)
  - Asthenia [None]
  - Diabetic ketoacidosis [None]
  - Urine ketone body present [None]
  - Hyperglycaemia [None]
  - Vomiting [None]
